FAERS Safety Report 4990390-3 (Version None)
Quarter: 2006Q1

REPORT INFORMATION
  Report Type: 
  Country: None (occurrence: None)
  Receive Date: 20060315
  Receipt Date: 20050309
  Transmission Date: 20060701
  Serious: Yes (Other)
  Sender: FDA-Public Use
  Company Number: USA050392767

PATIENT
  Age: 65 Year
  Sex: Female

DRUGS (1)
  1. GEMZAR [Suspect]
     Indication: ADENOCARCINOMA

REACTIONS (1)
  - PNEUMONITIS [None]
